FAERS Safety Report 14413760 (Version 1)
Quarter: 2018Q1

REPORT INFORMATION
  Report Type: Spontaneous
  Country: US (occurrence: US)
  Receive Date: 20180117
  Receipt Date: 20180117
  Transmission Date: 20180509
  Serious: Yes (Life-Threatening, Disabling, Other)
  Sender: FDA-Public Use
  Company Number: None

PATIENT
  Age: 49 Year
  Sex: Male
  Weight: 63.5 kg

DRUGS (6)
  1. FLOMAX [Concomitant]
     Active Substance: TAMSULOSIN HYDROCHLORIDE
  2. ONE-A-DAY NOS [Concomitant]
     Active Substance: MINERALS\VITAMINS
  3. FINASTERIDE. [Suspect]
     Active Substance: FINASTERIDE
     Indication: PROSTATOMEGALY
     Route: 048
     Dates: start: 20171006, end: 20171116
  4. ATENOLOL. [Concomitant]
     Active Substance: ATENOLOL
  5. ATORVASTATIN [Concomitant]
     Active Substance: ATORVASTATIN
  6. FISH OIL [Concomitant]
     Active Substance: FISH OIL

REACTIONS (16)
  - Chills [None]
  - Insomnia [None]
  - Fatigue [None]
  - Ejaculation failure [None]
  - Panic attack [None]
  - Chest pain [None]
  - Erectile dysfunction [None]
  - Dyspnoea [None]
  - Dizziness [None]
  - Anxiety [None]
  - Depression [None]
  - Disturbance in attention [None]
  - Libido decreased [None]
  - Apathy [None]
  - Testicular pain [None]
  - Asthenia [None]

NARRATIVE: CASE EVENT DATE: 20171207
